FAERS Safety Report 8913446 (Version 1)
Quarter: 2012Q4

REPORT INFORMATION
  Report Type: Report from Study
  Country: US (occurrence: US)
  Receive Date: 20121119
  Receipt Date: 20121119
  Transmission Date: 20130627
  Serious: Yes (Hospitalization, Other)
  Sender: FDA-Public Use
  Company Number: US-JNJFOC-20121103845

PATIENT
  Sex: Male
  Weight: 56.7 kg

DRUGS (3)
  1. REMICADE [Suspect]
     Indication: CROHN^S DISEASE
     Route: 042
  2. REMICADE [Suspect]
     Indication: CROHN^S DISEASE
     Route: 042
     Dates: start: 201208, end: 201208
  3. ANTIBIOTIC (UNSPECIFIED) [Suspect]
     Indication: INFECTION
     Route: 065
     Dates: start: 2012

REACTIONS (5)
  - Gastrointestinal obstruction [Recovered/Resolved]
  - Scar excision [Unknown]
  - Haemorrhage [Recovered/Resolved]
  - Impaired healing [Not Recovered/Not Resolved]
  - Infection [Not Recovered/Not Resolved]
